FAERS Safety Report 20053977 (Version 2)
Quarter: 2021Q4

REPORT INFORMATION
  Report Type: Report from Study
  Country: PT (occurrence: PT)
  Receive Date: 20211110
  Receipt Date: 20211119
  Transmission Date: 20220303
  Serious: Yes (Other)
  Sender: FDA-Public Use
  Company Number: PT-ABBVIE-21K-130-4118566-00

PATIENT
  Age: 64 Year
  Sex: Female

DRUGS (3)
  1. CARBIDOPA\LEVODOPA [Suspect]
     Active Substance: CARBIDOPA\LEVODOPA
     Indication: Parkinson^s disease
     Dosage: 20 MG + 5 MG?MORNING:14+5CC;MAINTE:5,4CC/H;EXTRA:2CC
     Route: 050
     Dates: start: 20210827, end: 2021
  2. CARBIDOPA\LEVODOPA [Suspect]
     Active Substance: CARBIDOPA\LEVODOPA
     Dosage: 20 MG + 5 MG?MORNING:6,3CC;MAINTENAN:2,3C/H;EXTRA:3CC
     Route: 050
     Dates: start: 20210917, end: 2021
  3. CARBIDOPA\LEVODOPA [Suspect]
     Active Substance: CARBIDOPA\LEVODOPA
     Dosage: 20 MG + 5 MG MORNIN:4,3CC;MAINTENAN:0,9CC/H;EXTRA:3CC
     Route: 050
     Dates: start: 2021

REACTIONS (5)
  - Thrombocytosis [Recovered/Resolved]
  - Pneumoperitoneum [Unknown]
  - Peritonitis [Unknown]
  - Incorrect route of product administration [Not Recovered/Not Resolved]
  - Haemoglobin abnormal [Not Recovered/Not Resolved]

NARRATIVE: CASE EVENT DATE: 20210101
